FAERS Safety Report 4485764-3 (Version None)
Quarter: 2004Q4

REPORT INFORMATION
  Report Type: 
  Country: None (occurrence: None)
  Receive Date: 20041022
  Receipt Date: 20041007
  Transmission Date: 20050328
  Serious: Yes (Other)
  Sender: FDA-Public Use
  Company Number: A03200403419

PATIENT
  Sex: Male

DRUGS (2)
  1. ALFUZOSIN [Suspect]
     Dosage: 10 MG OD - ORAL
     Route: 048
     Dates: start: 20040928
  2. SEVERAL CARDIOVASCULAR MEDICATIONS NOS [Concomitant]

REACTIONS (2)
  - CHEST PAIN [None]
  - DISEASE RECURRENCE [None]
